FAERS Safety Report 21789546 (Version 1)
Quarter: 2022Q4

REPORT INFORMATION
  Report Type: Spontaneous
  Country: US (occurrence: None)
  Receive Date: 20221228
  Receipt Date: 20221228
  Transmission Date: 20230113
  Serious: Yes (Other)
  Sender: FDA-Public Use
  Company Number: US-ROCHE-3248877

PATIENT
  Sex: Female
  Weight: 77 kg

DRUGS (1)
  1. OCREVUS [Suspect]
     Active Substance: OCRELIZUMAB
     Indication: Multiple sclerosis
     Dosage: PT RECEIVED ONE DOSE OF 300MG ON 06-DEC-2022 ;ONGOING: YES
     Route: 042
     Dates: start: 20221206

REACTIONS (2)
  - Cellulitis [Not Recovered/Not Resolved]
  - Product use in unapproved indication [Unknown]
